FAERS Safety Report 5275483-8 (Version None)
Quarter: 2007Q1

REPORT INFORMATION
  Report Type: 
  Country: None (occurrence: None)
  Receive Date: 20061213
  Receipt Date: 20040514
  Transmission Date: 20070707
  Serious: Yes (Hospitalization)
  Sender: FDA-Public Use
  Company Number: 2004UW10036

PATIENT
  Sex: Female
  Weight: 63.5036 kg

DRUGS (4)
  1. SEROQUEL [Suspect]
     Indication: ABNORMAL BEHAVIOUR
  2. COUMADIN [Concomitant]
  3. ALTACE [Concomitant]
  4. NIFEREX [Concomitant]

REACTIONS (1)
  - HYPERGLYCAEMIA [None]
